FAERS Safety Report 20461666 (Version 1)
Quarter: 2022Q1

REPORT INFORMATION
  Report Type: Spontaneous
  Country: US (occurrence: None)
  Receive Date: 20220211
  Receipt Date: 20220211
  Transmission Date: 20220424
  Serious: Yes (Other)
  Sender: FDA-Public Use
  Company Number: None

PATIENT
  Age: 82 Year
  Sex: Male
  Weight: 70 kg

DRUGS (1)
  1. AZITHROMYCIN [Suspect]
     Active Substance: AZITHROMYCIN
     Indication: Infection prophylaxis
     Dosage: 500 MG  3 TIMES A DAY BUCCAL
     Route: 002
     Dates: start: 20220127, end: 20220127

REACTIONS (2)
  - Confusional state [None]
  - Disorientation [None]

NARRATIVE: CASE EVENT DATE: 20220127
